FAERS Safety Report 5529341-1 (Version None)
Quarter: 2007Q4

REPORT INFORMATION
  Report Type: 
  Country: None (occurrence: None)
  Receive Date: 20071129
  Receipt Date: 20071127
  Transmission Date: 20080405
  Serious: Yes (Death)
  Sender: FDA-Public Use
  Company Number: US-BAXTER-2007BH009170

PATIENT
  Age: 83 Year
  Sex: Male

DRUGS (9)
  1. DIANEAL [Suspect]
     Indication: PERITONEAL DIALYSIS
     Route: 033
     Dates: start: 20070301, end: 20071118
  2. LEVOTHYROXINE SODIUM [Concomitant]
     Indication: THYROID DISORDER
     Route: 065
  3. NEPHROCAPS [Concomitant]
     Route: 065
  4. MEGESTROL ACETATE [Concomitant]
     Indication: ANOREXIA
     Route: 065
  5. MIDODRINE [Concomitant]
     Indication: HYPERTENSION
     Route: 065
  6. DEXFOL [Concomitant]
     Indication: DRUG USE FOR UNKNOWN INDICATION
     Route: 065
  7. L-LECTORAL [Concomitant]
     Indication: RENAL DISORDER
     Route: 065
  8. ROXINAL [Concomitant]
     Indication: PAIN
     Route: 065
  9. OXYGEN [Concomitant]
     Indication: OXYGEN CONSUMPTION
     Route: 065

REACTIONS (1)
  - RENAL FAILURE [None]
